FAERS Safety Report 19710550 (Version 4)
Quarter: 2021Q3

REPORT INFORMATION
  Report Type: Report from Study
  Country: CN (occurrence: CN)
  Receive Date: 20210816
  Receipt Date: 20210914
  Transmission Date: 20211014
  Serious: Yes (Hospitalization)
  Sender: FDA-Public Use
  Company Number: CN-PFIZER INC-202101016341

PATIENT
  Age: 45 Year
  Sex: Female
  Weight: 51 kg

DRUGS (23)
  1. VITAMIN C [Concomitant]
     Active Substance: ASCORBIC ACID
     Indication: NUTRITIONAL SUPPLEMENTATION
     Dosage: 2 G, ONCE
     Route: 041
     Dates: start: 20210726, end: 20210726
  2. BLINDED THERAPY [Suspect]
     Active Substance: INVESTIGATIONAL PRODUCT
     Indication: TRIPLE NEGATIVE BREAST CANCER
     Dosage: 200 MG, D1, D15
     Route: 041
     Dates: start: 20210323, end: 20210819
  3. CYCLOPHOSPHAMIDE. [Suspect]
     Active Substance: CYCLOPHOSPHAMIDE
     Indication: TRIPLE NEGATIVE BREAST CANCER
     Dosage: 765 MG, ONCE
     Route: 041
     Dates: start: 20210716, end: 20210716
  4. CARBOPLATIN. [Suspect]
     Active Substance: CARBOPLATIN
     Dosage: 159 MG, ONCE (FOR INJECTION)
     Route: 041
     Dates: start: 20210421, end: 20210421
  5. CARBOPLATIN. [Suspect]
     Active Substance: CARBOPLATIN
     Dosage: 158 MG, ONCE (FOR INJECTION)
     Route: 041
     Dates: start: 20210618, end: 20210618
  6. EPIRUBICIN HCL [Suspect]
     Active Substance: EPIRUBICIN HYDROCHLORIDE
     Indication: TRIPLE NEGATIVE BREAST CANCER
     Dosage: 137 MG, ONCE
     Route: 041
     Dates: start: 20210716, end: 20210716
  7. PACLITAXEL. [Suspect]
     Active Substance: PACLITAXEL
     Dosage: 153 MG, D1, D8, D15
     Route: 041
     Dates: start: 20210421, end: 20210702
  8. CARBOPLATIN. [Suspect]
     Active Substance: CARBOPLATIN
     Dosage: 146 MG, ONCE (FOR INJECTION)
     Route: 041
     Dates: start: 20210507, end: 20210507
  9. CARBOPLATIN. [Suspect]
     Active Substance: CARBOPLATIN
     Dosage: 170 MG, ONCE (FOR INJECTION)
     Route: 041
     Dates: start: 20210702, end: 20210702
  10. CARBOPLATIN. [Suspect]
     Active Substance: CARBOPLATIN
     Indication: TRIPLE NEGATIVE BREAST CANCER
     Dosage: 151 MG, ONCE (FOR INJECTION)
     Route: 041
     Dates: start: 20210323, end: 20210323
  11. CARBOPLATIN. [Suspect]
     Active Substance: CARBOPLATIN
     Dosage: 159 MG, ONCE (FOR INJECTION)
     Route: 041
     Dates: start: 20210604, end: 20210604
  12. SODIUM BICARBONATE. [Concomitant]
     Active Substance: SODIUM BICARBONATE
     Indication: STOMATITIS
     Dosage: 15 ML, TID (GARGLE)
     Route: 048
     Dates: start: 20210726, end: 20210801
  13. CARBOPLATIN. [Suspect]
     Active Substance: CARBOPLATIN
     Dosage: 154 MG, ONCE (FOR INJECTION)
     Route: 041
     Dates: start: 20210521, end: 20210521
  14. BUDESONIDE. [Concomitant]
     Active Substance: BUDESONIDE
     Indication: PROPHYLAXIS
     Dosage: 1 MG, TID (SUSPENSION FOR INHALATION, ATOMIZATION INHALATION)
     Route: 055
     Dates: start: 20210726, end: 20210801
  15. CARBOPLATIN. [Suspect]
     Active Substance: CARBOPLATIN
     Dosage: 181 MG, ONCE (FOR INJECTION)
     Route: 041
     Dates: start: 20210407, end: 20210407
  16. CARBOPLATIN. [Suspect]
     Active Substance: CARBOPLATIN
     Dosage: 169 MG, ONCE (FOR INJECTION)
     Route: 041
     Dates: start: 20210528, end: 20210528
  17. CARBOPLATIN. [Suspect]
     Active Substance: CARBOPLATIN
     Dosage: 171 MG, ONCE (FOR INJECTION)
     Route: 041
     Dates: start: 20210625, end: 20210625
  18. PACLITAXEL. [Suspect]
     Active Substance: PACLITAXEL
     Indication: TRIPLE NEGATIVE BREAST CANCER
     Dosage: 154 MG, D1, D8, D15
     Route: 041
     Dates: start: 20210323, end: 20210407
  19. CARBOPLATIN. [Suspect]
     Active Substance: CARBOPLATIN
     Dosage: 168 MG, ONCE (FOR INJECTION)
     Route: 041
     Dates: start: 20210428, end: 20210428
  20. IPRATROPIUM BROMIDE. [Concomitant]
     Active Substance: IPRATROPIUM BROMIDE
     Indication: PROPHYLAXIS
     Dosage: 500 UG, TID (SOLUTION FOR INHALATION, ATOMIZATION INHALATION)
     Route: 055
     Dates: start: 20210726, end: 20210801
  21. CARBOPLATIN. [Suspect]
     Active Substance: CARBOPLATIN
     Dosage: 153 MG, ONCE (FOR INJECTION)
     Route: 041
     Dates: start: 20210330, end: 20210330
  22. VITAMIN B6 [Concomitant]
     Active Substance: PYRIDOXINE HYDROCHLORIDE
     Indication: NUTRITIONAL SUPPLEMENTATION
     Dosage: 200 MG, ONCE
     Route: 041
     Dates: start: 20210726, end: 20210726
  23. POTASSIUM CHLORIDE. [Concomitant]
     Active Substance: POTASSIUM CHLORIDE
     Indication: FLUID REPLACEMENT
     Dosage: 1 G, ONCE
     Route: 041
     Dates: start: 20210726, end: 20210726

REACTIONS (5)
  - Neutrophil count decreased [Recovered/Resolved]
  - Pyrexia [Recovered/Resolved]
  - C-reactive protein increased [Recovered/Resolved]
  - Platelet count decreased [Recovered/Resolved]
  - White blood cell count decreased [Recovered/Resolved]

NARRATIVE: CASE EVENT DATE: 20210726
